FAERS Safety Report 20617667 (Version 1)
Quarter: 2022Q1

REPORT INFORMATION
  Report Type: Report from Study
  Country: CA (occurrence: CA)
  Receive Date: 20220321
  Receipt Date: 20220321
  Transmission Date: 20220423
  Serious: Yes (Hospitalization)
  Sender: FDA-Public Use
  Company Number: CA-TEVA-2022-CA-2018225

PATIENT
  Age: 48 Year
  Sex: Female

DRUGS (1)
  1. COPAXONE [Suspect]
     Active Substance: GLATIRAMER ACETATE
     Indication: Multiple sclerosis
     Dates: start: 20060329, end: 20120517

REACTIONS (9)
  - Atrial fibrillation [Unknown]
  - Cardiac failure congestive [Unknown]
  - Loss of consciousness [Unknown]
  - Dyspnoea [Unknown]
  - Arthralgia [Unknown]
  - Pain in extremity [Unknown]
  - Immediate post-injection reaction [Unknown]
  - Cancer surgery [Unknown]
  - Hysterectomy [Unknown]

NARRATIVE: CASE EVENT DATE: 20120101
